FAERS Safety Report 26021377 (Version 1)
Quarter: 2025Q4

REPORT INFORMATION
  Report Type: Spontaneous
  Country: US (occurrence: US)
  Receive Date: 20251110
  Receipt Date: 20251110
  Transmission Date: 20260117
  Serious: No
  Sender: MERCK SHARP & DOHME LLC
  Company Number: US-009507513-2345212

PATIENT
  Age: 18 Year
  Sex: Male

DRUGS (6)
  1. DORZOLAMIDE [Suspect]
     Active Substance: DORZOLAMIDE
     Indication: Intraocular pressure increased
  2. TIMOLOL [Suspect]
     Active Substance: TIMOLOL
     Indication: Intraocular pressure increased
     Route: 061
  3. BRIMONIDINE [Suspect]
     Active Substance: BRIMONIDINE TARTRATE
     Indication: Intraocular pressure increased
  4. ACETAZOLAMIDE [Suspect]
     Active Substance: ACETAZOLAMIDE
     Indication: Intraocular pressure increased
  5. PREDNISONE [Concomitant]
     Active Substance: PREDNISONE
  6. RANIBIZUMAB [Concomitant]
     Active Substance: RANIBIZUMAB
     Indication: Macular oedema

REACTIONS (1)
  - Drug ineffective [Unknown]
